FAERS Safety Report 10463032 (Version 2)
Quarter: 2014Q4

REPORT INFORMATION
  Report Type: Report from Study
  Country: ID (occurrence: ID)
  Receive Date: 20140919
  Receipt Date: 20141008
  Transmission Date: 20150528
  Serious: Yes (Other)
  Sender: FDA-Public Use
  Company Number: ID-ROCHE-1463639

PATIENT
  Age: 43 Year
  Sex: Female

DRUGS (1)
  1. MABTHERA [Suspect]
     Active Substance: RITUXIMAB
     Indication: PRODUCT USED FOR UNKNOWN INDICATION
     Route: 065

REACTIONS (6)
  - Mass [Not Recovered/Not Resolved]
  - General physical health deterioration [Unknown]
  - Myalgia [Unknown]
  - Mouth ulceration [Unknown]
  - Fatigue [Unknown]
  - Chapped lips [Unknown]
